FAERS Safety Report 4295425-1 (Version None)
Quarter: 2004Q1

REPORT INFORMATION
  Report Type: 
  Country: None (occurrence: None)
  Receive Date: 20040212
  Receipt Date: 20020422
  Transmission Date: 20041129
  Serious: Yes (Death, Hospitalization)
  Sender: FDA-Public Use
  Company Number: F01200200128

PATIENT
  Age: 64 Year
  Sex: Male

DRUGS (3)
  1. (OXALIPLATIN) - SOLUTION- 85 MG/M2 [Suspect]
     Indication: COLORECTAL CANCER METASTATIC
     Dosage: SEE IMAGE, INTRAVENOUS NOS
     Route: 042
     Dates: start: 20020429, end: 20020429
  2. FLUOROURACIL [Suspect]
     Dosage: Q2W, 200 MG/M2 AS 2-HOUR INFUSION ON D1, D2;  INTRAVENOUS NOS
     Route: 042
     Dates: start: 20020429, end: 20020429
  3. LEUCOVORIN CALCIUM [Suspect]
     Dosage: Q2W OR 400 MG/M2 AS 2-HOUR INFUSION ON D1; Q2W, INTRAVENOUS NOS
     Route: 042
     Dates: start: 20020429, end: 20020429

REACTIONS (1)
  - PNEUMONIA BACTERIAL [None]
